FAERS Safety Report 14738362 (Version 2)
Quarter: 2018Q2

REPORT INFORMATION
  Report Type: Spontaneous
  Country: US (occurrence: US)
  Receive Date: 20180409
  Receipt Date: 20180411
  Transmission Date: 20180711
  Serious: Yes (Hospitalization, Other)
  Sender: FDA-Public Use
  Company Number: US-JAZZ-JPI-P-016954

PATIENT
  Age: 35 Year
  Sex: Male
  Weight: 86.36 kg

DRUGS (2)
  1. XYREM [Suspect]
     Active Substance: SODIUM OXYBATE
     Indication: NARCOLEPSY
     Dosage: UNK UNK, QD
     Route: 048
     Dates: start: 200809
  2. XYREM [Suspect]
     Active Substance: SODIUM OXYBATE
     Indication: CATAPLEXY
     Dosage: 4.5 G, BID
     Route: 048

REACTIONS (5)
  - Abdominal hernia [Recovered/Resolved]
  - Abdominal abscess [Recovered/Resolved]
  - Abdominal pain upper [Recovered/Resolved]
  - Cholecystitis infective [Recovering/Resolving]
  - Pancreatitis [Recovered/Resolved]

NARRATIVE: CASE EVENT DATE: 200902
